FAERS Safety Report 21958397 (Version 1)
Quarter: 2023Q1

REPORT INFORMATION
  Report Type: Spontaneous
  Country: US (occurrence: None)
  Receive Date: 20230203
  Receipt Date: 20230203
  Transmission Date: 20230418
  Serious: No
  Sender: FDA-Public Use
  Company Number: None

PATIENT
  Sex: Female
  Weight: 59.42 kg

DRUGS (16)
  1. CAPECITABINE [Suspect]
     Active Substance: CAPECITABINE
     Indication: Breast cancer
     Dosage: FREQUENCY : TWICE A DAY;?
     Route: 048
     Dates: start: 202212
  2. TUKYSA [Suspect]
     Active Substance: TUCATINIB
  3. ONDANSETRON [Concomitant]
     Active Substance: ONDANSETRON
  4. PROCHLORPERAZINE [Concomitant]
     Active Substance: PROCHLORPERAZINE
  5. HERCEPTIN [Concomitant]
     Active Substance: TRASTUZUMAB
  6. TRAMADOL [Concomitant]
     Active Substance: TRAMADOL
  7. ACETAMINOPHEN [Concomitant]
     Active Substance: ACETAMINOPHEN
  8. IMODIUM [Concomitant]
     Active Substance: LOPERAMIDE HYDROCHLORIDE
  9. LIPITOR [Concomitant]
     Active Substance: ATORVASTATIN CALCIUM
  10. MIRALAX [Concomitant]
     Active Substance: POLYETHYLENE GLYCOL 3350
  11. SYNTHROID [Concomitant]
     Active Substance: LEVOTHYROXINE SODIUM
  12. MOTRIN [Concomitant]
     Active Substance: IBUPROFEN
  13. DIPHENOXYLATE ATROPINE [Concomitant]
  14. HYDROMORPHONE [Concomitant]
     Active Substance: HYDROMORPHONE
  15. CYCLOBENZAPRINE [Concomitant]
     Active Substance: CYCLOBENZAPRINE
  16. METOPROLOL [Concomitant]
     Active Substance: METOPROLOL

REACTIONS (2)
  - Diarrhoea [None]
  - Blood potassium decreased [None]
